FAERS Safety Report 10195406 (Version 1)
Quarter: 2014Q2

REPORT INFORMATION
  Report Type: Spontaneous
  Country: CN (occurrence: CN)
  Receive Date: 20140526
  Receipt Date: 20140526
  Transmission Date: 20141212
  Serious: Yes (Life-Threatening, Hospitalization, Other)
  Sender: FDA-Public Use
  Company Number: CN-ASTRAZENECA-2014SE32190

PATIENT
  Age: 22934 Day
  Sex: Female
  Weight: 55 kg

DRUGS (6)
  1. FELODIPINE [Suspect]
     Indication: HYPERTENSION
     Route: 048
     Dates: start: 20121208
  2. SHENMAI INJECTION [Suspect]
     Dates: start: 20121208
  3. SHENSHUAINING [Suspect]
     Dates: start: 20121208
  4. CHARCOAL [Suspect]
     Dates: start: 20121208
  5. HEPARIN SODIUM [Suspect]
     Route: 030
     Dates: start: 20121222
  6. HEPARIN SODIUM [Suspect]
     Dosage: 12500U FOUR TIMES A DAY
     Route: 041
     Dates: start: 20121222

REACTIONS (4)
  - Shock haemorrhagic [Unknown]
  - Haematochezia [Not Recovered/Not Resolved]
  - Gastrointestinal haemorrhage [None]
  - Haematochezia [None]
